FAERS Safety Report 8282979-3 (Version None)
Quarter: 2012Q1

REPORT INFORMATION
  Report Type: 
  Country: None (occurrence: None)
  Receive Date: 20120328
  Receipt Date: 20120319
  Transmission Date: 20120608
  Serious: Yes (Other)
  Sender: FDA-Public Use
  Company Number: 2012031669

PATIENT
  Weight: 43 kg

DRUGS (1)
  1. HIZENTRA [Suspect]
     Indication: IMMUNODEFICIENCY COMMON VARIABLE
     Dosage: (13 G 1X/WEEK SUBCUTANEOUS)
     Route: 058
     Dates: start: 20100101

REACTIONS (3)
  - INFECTION [None]
  - NO THERAPEUTIC RESPONSE [None]
  - GASTROINTESTINAL DISORDER [None]
